FAERS Safety Report 13192357 (Version 2)
Quarter: 2017Q1

REPORT INFORMATION
  Report Type: Spontaneous
  Country: US (occurrence: US)
  Receive Date: 20170207
  Receipt Date: 20170315
  Transmission Date: 20170428
  Serious: Yes (Hospitalization)
  Sender: FDA-Public Use
  Company Number: US-ASTRAZENECA-2017SE11760

PATIENT
  Age: 28771 Day
  Sex: Male
  Weight: 113.4 kg

DRUGS (14)
  1. MELOXICAM. [Concomitant]
     Active Substance: MELOXICAM
     Indication: ARTHRITIS
     Route: 048
  2. ATORVASTATIN [Concomitant]
     Active Substance: ATORVASTATIN
     Indication: CARDIAC DISORDER
     Route: 048
  3. FAMOTIDINE. [Concomitant]
     Active Substance: FAMOTIDINE
     Indication: GASTROINTESTINAL DISORDER
     Route: 048
  4. TRAZODONE [Concomitant]
     Active Substance: TRAZODONE HYDROCHLORIDE
     Indication: SLEEP DISORDER
     Route: 048
  5. VITAMIN B NOS [Concomitant]
     Active Substance: VITAMIN B
     Dosage: DAILY
     Route: 048
  6. SPIRIVA [Concomitant]
     Active Substance: TIOTROPIUM BROMIDE MONOHYDRATE
     Indication: CHRONIC OBSTRUCTIVE PULMONARY DISEASE
     Dosage: DAILY
     Route: 055
     Dates: start: 2016
  7. RAMIPRIL. [Concomitant]
     Active Substance: RAMIPRIL
     Indication: BLOOD PRESSURE ABNORMAL
     Route: 048
  8. FENOFIBRATE. [Concomitant]
     Active Substance: FENOFIBRATE
     Indication: CARDIAC DISORDER
     Route: 048
  9. CITALOPRAM [Concomitant]
     Active Substance: CITALOPRAM HYDROBROMIDE
     Indication: AFFECTIVE DISORDER
  10. FISH OIL [Concomitant]
     Active Substance: FISH OIL
     Route: 048
  11. FENOFIBRATE. [Concomitant]
     Active Substance: FENOFIBRATE
     Indication: BLOOD CHOLESTEROL ABNORMAL
     Route: 048
  12. PROBIOTIC [Concomitant]
     Active Substance: PROBIOTICS NOS
     Dosage: DAILY
     Route: 048
  13. SYMBICORT [Suspect]
     Active Substance: BUDESONIDE\FORMOTEROL FUMARATE DIHYDRATE
     Indication: CHRONIC OBSTRUCTIVE PULMONARY DISEASE
     Dosage: 160/4.5 UG, TWO PUFFS TWICE DAILY
     Route: 055
     Dates: start: 201512
  14. ELIQUIS [Concomitant]
     Active Substance: APIXABAN
     Indication: CARDIAC MURMUR
     Route: 048

REACTIONS (6)
  - Weight increased [Unknown]
  - Body height decreased [Unknown]
  - Heart rate decreased [Unknown]
  - Dyspnoea [Unknown]
  - Incorrect dose administered [Unknown]
  - Intentional device misuse [Unknown]

NARRATIVE: CASE EVENT DATE: 20170128
